FAERS Safety Report 14091714 (Version 1)
Quarter: 2017Q4

REPORT INFORMATION
  Report Type: Report from Study
  Country: US (occurrence: US)
  Receive Date: 20171016
  Receipt Date: 20171016
  Transmission Date: 20180321
  Serious: Yes (Other)
  Sender: FDA-Public Use
  Company Number: US-ROCHE-1988014

PATIENT
  Sex: Female

DRUGS (10)
  1. QVAR [Concomitant]
     Active Substance: BECLOMETHASONE DIPROPIONATE
     Route: 065
  2. ZOLOFT [Concomitant]
     Active Substance: SERTRALINE HYDROCHLORIDE
     Route: 048
  3. PRILOSEC [Concomitant]
     Active Substance: OMEPRAZOLE MAGNESIUM
     Route: 048
  4. ROCEPHIN [Suspect]
     Active Substance: CEFTRIAXONE SODIUM
     Indication: PRODUCT USED FOR UNKNOWN INDICATION
     Route: 065
  5. LASIX [Concomitant]
     Active Substance: FUROSEMIDE
     Route: 048
  6. SINGULAIR [Concomitant]
     Active Substance: MONTELUKAST SODIUM
     Route: 048
  7. XOLAIR [Suspect]
     Active Substance: OMALIZUMAB
     Indication: ASTHMA
     Route: 058
  8. VISTARIL [Concomitant]
     Active Substance: HYDROXYZINE PAMOATE
     Route: 065
  9. BENICAR [Concomitant]
     Active Substance: OLMESARTAN MEDOXOMIL
     Route: 048
  10. DULERA [Concomitant]
     Active Substance: FORMOTEROL FUMARATE DIHYDRATE\MOMETASONE FUROATE
     Dosage: 100-5 MCG/ACTUATION
     Route: 065

REACTIONS (5)
  - Malaise [Unknown]
  - Plantar fasciitis [Unknown]
  - Arthralgia [Unknown]
  - Fatigue [Unknown]
  - Anaphylactic reaction [Unknown]
